FAERS Safety Report 24386099 (Version 1)
Quarter: 2024Q4

REPORT INFORMATION
  Report Type: Spontaneous
  Country: JP (occurrence: JP)
  Receive Date: 20241001
  Receipt Date: 20241001
  Transmission Date: 20250115
  Serious: Yes (Life-Threatening, Hospitalization)
  Sender: BRECKENRIDGE
  Company Number: JP-Breckenridge Pharmaceutical, Inc.-2162275

PATIENT
  Age: 89 Year
  Sex: Female

DRUGS (3)
  1. LANSOPRAZOLE [Suspect]
     Active Substance: LANSOPRAZOLE
  2. ACETAMINOPHEN [Concomitant]
     Active Substance: ACETAMINOPHEN
  3. Lixiana (EDOXABAN TOSILATE HYDRATE) [Concomitant]

REACTIONS (1)
  - Interstitial lung disease [Unknown]
